FAERS Safety Report 12818673 (Version 3)
Quarter: 2018Q2

REPORT INFORMATION
  Report Type: Report from Study
  Country: CO (occurrence: CO)
  Receive Date: 20161006
  Receipt Date: 20180611
  Transmission Date: 20180711
  Serious: Yes (Hospitalization, Other)
  Sender: FDA-Public Use
  Company Number: PHHY2016CO074877

PATIENT
  Sex: Female
  Weight: 51 kg

DRUGS (4)
  1. EXJADE [Suspect]
     Active Substance: DEFERASIROX
     Indication: THALASSAEMIA
     Dosage: 500 MG, QD
     Route: 048
     Dates: start: 20110101
  2. EXJADE [Suspect]
     Active Substance: DEFERASIROX
     Dosage: 1 DF, QD (1 TABLET DAILY)
     Route: 048
  3. EXJADE [Suspect]
     Active Substance: DEFERASIROX
     Dosage: 1 DF, QD (2 TABLET OF 500 MG DAILY)
     Route: 048
     Dates: start: 2016
  4. DANAZOL. [Concomitant]
     Active Substance: DANAZOL
     Indication: PRODUCT USED FOR UNKNOWN INDICATION
     Route: 065

REACTIONS (9)
  - Muscle spasms [Unknown]
  - Constipation [Unknown]
  - Drug dispensing error [Unknown]
  - Haemoglobin decreased [Unknown]
  - Dysstasia [Unknown]
  - Trismus [Unknown]
  - Pain in jaw [Unknown]
  - Asphyxia [Unknown]
  - Diarrhoea [Unknown]
